FAERS Safety Report 8674278 (Version 2)
Quarter: 2012Q4

REPORT INFORMATION
  Report Type: 
  Country: JP (occurrence: JP)
  Receive Date: 20120719
  Receipt Date: 20121224
  Transmission Date: 20130627
  Serious: Yes (Death, Hospitalization, Other)
  Sender: FDA-Public Use
  Company Number: JP-ABBOTT-12P-087-0957788-00

PATIENT
  Age: 20 Year
  Sex: Female

DRUGS (7)
  1. LIPACREON [Suspect]
     Indication: CYSTIC FIBROSIS PANCREATIC
     Route: 048
     Dates: start: 20111017, end: 20111212
  2. AMBROXOL HYDROCHLORIDE [Concomitant]
     Indication: PRODUCT USED FOR UNKNOWN INDICATION
     Route: 048
  3. URSODEOXYCHOLIC ACID [Concomitant]
     Indication: PRODUCT USED FOR UNKNOWN INDICATION
     Route: 048
  4. LEVOFLOXACIN HYDRATE [Concomitant]
     Indication: PRODUCT USED FOR UNKNOWN INDICATION
     Route: 048
  5. ETIZOLAM [Concomitant]
     Indication: PRODUCT USED FOR UNKNOWN INDICATION
     Route: 048
  6. ACETYLCYSTEIN [Concomitant]
     Indication: PRODUCT USED FOR UNKNOWN INDICATION
     Route: 055
  7. TOBRAMYCIN [Concomitant]
     Indication: PRODUCT USED FOR UNKNOWN INDICATION
     Dates: start: 2006

REACTIONS (2)
  - Pulmonary haemorrhage [Fatal]
  - Haematemesis [Fatal]
